FAERS Safety Report 4875607-8 (Version None)
Quarter: 2006Q1

REPORT INFORMATION
  Report Type: 
  Country: None (occurrence: None)
  Receive Date: 20060105
  Receipt Date: 20051222
  Transmission Date: 20060701
  Serious: Yes (Hospitalization)
  Sender: FDA-Public Use
  Company Number: 2005168630

PATIENT
  Age: 50 Year
  Sex: Female
  Weight: 47 kg

DRUGS (9)
  1. IRINOTECAN HCL [Suspect]
     Indication: GALLBLADDER CANCER
     Dosage: SEE IMAGE
     Route: 042
     Dates: start: 20050404, end: 20050602
  2. IRINOTECAN HCL [Suspect]
     Indication: GALLBLADDER CANCER
     Dosage: SEE IMAGE
     Route: 042
     Dates: start: 20040408
  3. IRINOTECAN HCL [Suspect]
     Indication: GALLBLADDER CANCER
     Dosage: SEE IMAGE
     Route: 042
     Dates: start: 20040513
  4. IRINOTECAN HCL [Suspect]
     Indication: GALLBLADDER CANCER
     Dosage: SEE IMAGE
     Route: 042
     Dates: start: 20040927
  5. IRINOTECAN HCL [Suspect]
     Indication: GALLBLADDER CANCER
     Dosage: SEE IMAGE
     Route: 042
     Dates: start: 20050616
  6. MUCOSTA (REBAMIPIDE) [Concomitant]
  7. MAGNESIUM OXIDE (MAGNESIUM OXIDE) [Concomitant]
  8. JUZENTAIHOTO (HERBAL EXTRACTS NOS) [Concomitant]
  9. FERRO-GRADUMET (FERROUS SULFATE) [Concomitant]

REACTIONS (4)
  - CHOLANGIOLITIS [None]
  - CHOLANGITIS [None]
  - DRUG HYPERSENSITIVITY [None]
  - POST PROCEDURAL COMPLICATION [None]
